FAERS Safety Report 10864326 (Version 1)
Quarter: 2015Q1

REPORT INFORMATION
  Report Type: Spontaneous
  Country: US (occurrence: US)
  Receive Date: 20150223
  Receipt Date: 20150223
  Transmission Date: 20150721
  Serious: No
  Sender: FDA-Public Use
  Company Number: US-AMGEN-USASP2014012263

PATIENT
  Age: 44 Year
  Sex: Female

DRUGS (1)
  1. ENBREL [Suspect]
     Active Substance: ETANERCEPT
     Indication: RHEUMATOID ARTHRITIS
     Dosage: 25 MG, 2 TIMES/WK
     Route: 065
     Dates: start: 20120928, end: 201308

REACTIONS (12)
  - Burning sensation [Recovered/Resolved]
  - Arthralgia [Recovered/Resolved]
  - Salivary gland disorder [Not Recovered/Not Resolved]
  - Gallbladder disorder [Recovered/Resolved]
  - Inflammation [Recovered/Resolved]
  - Dyspnoea [Not Recovered/Not Resolved]
  - Injection site pain [Recovered/Resolved]
  - Injection site bruising [Recovered/Resolved]
  - Local swelling [Recovered/Resolved]
  - Abdominal pain [Not Recovered/Not Resolved]
  - Pain [Not Recovered/Not Resolved]
  - Lymphadenopathy [Recovered/Resolved]

NARRATIVE: CASE EVENT DATE: 201210
